FAERS Safety Report 14067623 (Version 1)
Quarter: 2017Q4

REPORT INFORMATION
  Report Type: Spontaneous
  Country: US (occurrence: US)
  Receive Date: 20171009
  Receipt Date: 20171009
  Transmission Date: 20180321
  Serious: No
  Sender: FDA-Public Use
  Company Number: None

PATIENT
  Age: 52 Year
  Sex: Female
  Weight: 63 kg

DRUGS (4)
  1. HYDROCODONE [Suspect]
     Active Substance: HYDROCODONE
     Indication: PAIN
     Route: 048
  2. SERTRALINE [Concomitant]
     Active Substance: SERTRALINE HYDROCHLORIDE
  3. IBUPROFEN. [Concomitant]
     Active Substance: IBUPROFEN
  4. ATORVASTATIN [Concomitant]
     Active Substance: ATORVASTATIN

REACTIONS (3)
  - Drug ineffective [None]
  - Product colour issue [None]
  - Product substitution issue [None]

NARRATIVE: CASE EVENT DATE: 20170927
